FAERS Safety Report 8407471-4 (Version None)
Quarter: 2012Q2

REPORT INFORMATION
  Report Type: 
  Country: None (occurrence: None)
  Receive Date: 20120604
  Receipt Date: 20120529
  Transmission Date: 20120825
  Serious: Yes (Other)
  Sender: FDA-Public Use
  Company Number: BR-PFIZER INC-2012129015

PATIENT
  Age: 87 Year
  Sex: Female

DRUGS (9)
  1. COSOPT [Concomitant]
     Dosage: UNK
  2. HYDROCHLOROTHIAZIDE [Concomitant]
     Indication: URINE ABNORMALITY
     Dosage: UNK
  3. VERAPAMIL [Concomitant]
     Indication: HYPERTENSION
     Dosage: UNK
  4. ASPIRIN [Concomitant]
     Dosage: UNK
  5. ADAPETTES [Concomitant]
     Dosage: UNK
  6. METHYLDOPA [Concomitant]
     Indication: BLOOD PRESSURE
     Dosage: UNK
  7. CILOSTAZOL [Concomitant]
     Indication: PERIPHERAL VASCULAR DISORDER
     Dosage: UNK
  8. XALATAN [Suspect]
     Indication: INTRAOCULAR PRESSURE INCREASED
     Dosage: 1.5 UG, 1X/DAY
     Route: 047
     Dates: start: 20001025, end: 20120411
  9. ENALAPRIL [Concomitant]
     Indication: HYPERTENSION
     Dosage: UNK

REACTIONS (3)
  - CORNEAL ABRASION [None]
  - EYE PRURITUS [None]
  - CATARACT [None]
